FAERS Safety Report 16854805 (Version 1)
Quarter: 2019Q3

REPORT INFORMATION
  Report Type: Report from Study
  Country: US (occurrence: US)
  Receive Date: 20190926
  Receipt Date: 20190926
  Transmission Date: 20191005
  Serious: Yes (Hospitalization, Other)
  Sender: FDA-Public Use
  Company Number: US-GLAXOSMITHKLINE-2018-TSO2519-US

PATIENT
  Age: 48 Year
  Sex: Female

DRUGS (6)
  1. NIRAPARIB [Suspect]
     Active Substance: NIRAPARIB
     Dosage: 100 MG EVERY OTHER DAY WITH FOOD
     Route: 048
     Dates: start: 201902
  2. MIRALAX [Concomitant]
     Active Substance: POLYETHYLENE GLYCOL 3350
     Indication: PRODUCT USED FOR UNKNOWN INDICATION
  3. NIRAPARIB [Suspect]
     Active Substance: NIRAPARIB
     Dosage: 100 MG, QD
     Route: 048
  4. NIRAPARIB [Suspect]
     Active Substance: NIRAPARIB
     Dosage: 200 MG, QD, QPM WITHOUT FOOD, 2 CAPSULES BY MOUTH NIGHTLY
     Route: 048
     Dates: start: 20181213
  5. NIRAPARIB [Suspect]
     Active Substance: NIRAPARIB
     Indication: OVARIAN CANCER
     Dosage: 100 MG, UNK
     Route: 048
     Dates: start: 20190123
  6. COLESTID [Concomitant]
     Active Substance: COLESTIPOL HYDROCHLORIDE
     Indication: PRODUCT USED FOR UNKNOWN INDICATION
     Dosage: UNK

REACTIONS (22)
  - Visual impairment [Unknown]
  - Thirst [Not Recovered/Not Resolved]
  - Night sweats [Unknown]
  - Nasal septum deviation [Unknown]
  - Heart rate abnormal [Unknown]
  - Abdominal pain upper [Unknown]
  - Inappropriate schedule of product administration [Unknown]
  - Intestinal obstruction [Unknown]
  - Dizziness [Not Recovered/Not Resolved]
  - Anxiety [Recovering/Resolving]
  - Palpitations [Recovered/Resolved]
  - Full blood count decreased [Not Recovered/Not Resolved]
  - Non-high-density lipoprotein cholesterol increased [Unknown]
  - Blood glucose decreased [Unknown]
  - Heart rate increased [Not Recovered/Not Resolved]
  - Blood cholesterol increased [Unknown]
  - Back pain [Unknown]
  - Product dose omission [Unknown]
  - Dry mouth [Unknown]
  - Headache [Not Recovered/Not Resolved]
  - High density lipoprotein increased [Unknown]
  - Pain [Unknown]

NARRATIVE: CASE EVENT DATE: 201812
